FAERS Safety Report 16821703 (Version 1)
Quarter: 2019Q4

REPORT INFORMATION
  Report Type: Spontaneous
  Country: US (occurrence: US)
  Receive Date: 20190917
  Receipt Date: 20190917
  Transmission Date: 20200122
  Serious: No
  Sender: FDA-Public Use
  Company Number: None

PATIENT
  Age: 43 Year
  Sex: Male
  Weight: 70.6 kg

DRUGS (2)
  1. CAPECITABINE. [Suspect]
     Active Substance: CAPECITABINE
     Indication: METASTASES TO PLEURA
     Route: 048
     Dates: start: 20190708, end: 20190917
  2. CAPECITABINE. [Suspect]
     Active Substance: CAPECITABINE
     Indication: METASTASES TO PLEURA
     Route: 048
     Dates: start: 20190708, end: 20190917

REACTIONS (1)
  - Hospice care [None]

NARRATIVE: CASE EVENT DATE: 20190917
